FAERS Safety Report 21756118 (Version 1)
Quarter: 2022Q4

REPORT INFORMATION
  Report Type: Spontaneous
  Country: US (occurrence: None)
  Receive Date: 20221219
  Receipt Date: 20221219
  Transmission Date: 20230112
  Serious: Yes (Other)
  Sender: FDA-Public Use
  Company Number: None

PATIENT
  Sex: Female

DRUGS (1)
  1. HUMIRA [Suspect]
     Active Substance: ADALIMUMAB
     Dosage: FREQUENCY : EVERY OTHER WEEK;?
     Route: 058
     Dates: start: 202211

REACTIONS (8)
  - Glossitis [None]
  - Tonsillar hypertrophy [None]
  - Injection site erythema [None]
  - Injection site pruritus [None]
  - Tongue dry [None]
  - Myalgia [None]
  - Psoriasis [None]
  - Rash pustular [None]
